FAERS Safety Report 23034198 (Version 1)
Quarter: 2023Q4

REPORT INFORMATION
  Report Type: Report from Study
  Country: CA (occurrence: CA)
  Receive Date: 20231005
  Receipt Date: 20231005
  Transmission Date: 20240110
  Serious: Yes (Other)
  Sender: FDA-Public Use
  Company Number: CA-002147023-NVSC2022CA191261

PATIENT
  Sex: Male

DRUGS (3)
  1. HYRIMOZ [Suspect]
     Active Substance: ADALIMUMAB-ADAZ
     Indication: Psoriatic arthropathy
     Dosage: 40 MG
     Route: 058
     Dates: start: 20220608
  2. HYRIMOZ [Suspect]
     Active Substance: ADALIMUMAB-ADAZ
     Dosage: 40 MG
     Route: 058
     Dates: start: 20220622
  3. HYRIMOZ [Suspect]
     Active Substance: ADALIMUMAB-ADAZ
     Dosage: 40 MG
     Route: 058
     Dates: start: 20220722, end: 20220817

REACTIONS (7)
  - Deafness [Recovered/Resolved]
  - Mastoiditis [Recovered/Resolved]
  - Arthritis [Recovered/Resolved]
  - Plicated tongue [Recovered/Resolved]
  - Hand-foot-and-mouth disease [Recovered/Resolved]
  - Synovitis [Recovered/Resolved]
  - Tongue fungal infection [Recovered/Resolved]
